FAERS Safety Report 20768409 (Version 1)
Quarter: 2022Q2

REPORT INFORMATION
  Report Type: Spontaneous
  Country: US (occurrence: None)
  Receive Date: 20220428
  Receipt Date: 20220428
  Transmission Date: 20220721
  Serious: No
  Sender: FDA-Public Use
  Company Number: None

PATIENT
  Age: 61 Year
  Sex: Female
  Weight: 75.75 kg

DRUGS (11)
  1. IBRANCE [Suspect]
     Active Substance: PALBOCICLIB
     Indication: Breast cancer female
     Dosage: OTHER FREQUENCY : 21D ON 7D OFF;?
     Route: 048
  2. ATORVASTATIN [Concomitant]
     Active Substance: ATORVASTATIN
  3. BENZONATATE [Concomitant]
     Active Substance: BENZONATATE
  4. DULOXETINE [Concomitant]
     Active Substance: DULOXETINE
  5. IPRATROPIUM [Concomitant]
     Active Substance: IPRATROPIUM
  6. LISINOPRIL [Concomitant]
     Active Substance: LISINOPRIL
  7. TAMOXIFEN [Concomitant]
     Active Substance: TAMOXIFEN
  8. TRAZODONE [Concomitant]
     Active Substance: TRAZODONE HYDROCHLORIDE
  9. TRILEGY [Concomitant]
  10. TUMS [Concomitant]
     Active Substance: CALCIUM CARBONATE
  11. WELLBUTRIN [Concomitant]
     Active Substance: BUPROPION HYDROCHLORIDE

REACTIONS (2)
  - White blood cell count decreased [None]
  - Constipation [None]
